FAERS Safety Report 11645156 (Version 3)
Quarter: 2015Q4

REPORT INFORMATION
  Report Type: Spontaneous
  Country: US (occurrence: US)
  Receive Date: 20151020
  Receipt Date: 20151027
  Transmission Date: 20160304
  Serious: Yes (Death)
  Sender: FDA-Public Use
  Company Number: CHPA2015US012256

PATIENT
  Age: 101 Year
  Sex: Female

DRUGS (1)
  1. KERI LOTION [Suspect]
     Active Substance: LANOLIN\MINERAL OIL
     Indication: PRODUCT USED FOR UNKNOWN INDICATION
     Route: 065

REACTIONS (1)
  - Death [Fatal]
